FAERS Safety Report 21501284 (Version 2)
Quarter: 2022Q4

REPORT INFORMATION
  Report Type: Spontaneous
  Country: US (occurrence: US)
  Receive Date: 20221025
  Receipt Date: 20221215
  Transmission Date: 20230113
  Serious: Yes (Hospitalization, Other)
  Sender: FDA-Public Use
  Company Number: US-GLENMARK PHARMACEUTICALS-2022GMK075829

PATIENT

DRUGS (2)
  1. NORETHINDRONE [Suspect]
     Active Substance: NORETHINDRONE
     Indication: Oral contraception
     Dosage: 0.35 MILLIGRAM, OD
     Route: 048
     Dates: start: 2022
  2. NORETHINDRONE [Suspect]
     Active Substance: NORETHINDRONE
     Dosage: 0.35 MILLIGRAM, OD
     Route: 048
     Dates: start: 20221006

REACTIONS (3)
  - Abortion spontaneous [Unknown]
  - Pregnancy on oral contraceptive [Unknown]
  - Drug ineffective [Unknown]

NARRATIVE: CASE EVENT DATE: 20221002
